FAERS Safety Report 18992734 (Version 1)
Quarter: 2021Q1

REPORT INFORMATION
  Report Type: Spontaneous
  Country: FR (occurrence: FR)
  Receive Date: 20210310
  Receipt Date: 20210310
  Transmission Date: 20210420
  Serious: Yes (Hospitalization)
  Sender: FDA-Public Use
  Company Number: FR-EISAI MEDICAL RESEARCH-EC-2021-088742

PATIENT
  Age: 68 Year
  Sex: Male
  Weight: 62 kg

DRUGS (3)
  1. FLECAINIDE [Suspect]
     Active Substance: FLECAINIDE
     Indication: ATRIAL FIBRILLATION
     Dosage: FREQUENCY UNKNOWN
     Route: 048
     Dates: start: 202011, end: 20210201
  2. LENVIMA [Suspect]
     Active Substance: LENVATINIB
     Indication: THYMIC CANCER METASTATIC
     Dosage: FREQUENCY UNKNOWN
     Route: 048
     Dates: start: 20201214, end: 20210205
  3. CORDARONE [Suspect]
     Active Substance: AMIODARONE HYDROCHLORIDE
     Indication: ATRIAL FIBRILLATION
     Route: 048
     Dates: start: 2018, end: 20201112

REACTIONS (2)
  - Left ventricular failure [Unknown]
  - Interstitial lung disease [Recovering/Resolving]

NARRATIVE: CASE EVENT DATE: 20210126
